FAERS Safety Report 12136220 (Version 1)
Quarter: 2016Q1

REPORT INFORMATION
  Report Type: Report from Study
  Country: DE (occurrence: DE)
  Receive Date: 20160302
  Receipt Date: 20160302
  Transmission Date: 20160526
  Serious: Yes (Death, Hospitalization)
  Sender: FDA-Public Use
  Company Number: DE-CELGENE-062-21880-09051628

PATIENT
  Age: 70 Year
  Sex: Female
  Weight: 93 kg

DRUGS (4)
  1. REVLIMID [Suspect]
     Active Substance: LENALIDOMIDE
     Indication: PLASMACYTOMA
     Dosage: 15 MILLIGRAM
     Route: 048
     Dates: start: 20080811, end: 20080815
  2. DAUNOMYCIN [Concomitant]
     Active Substance: DAUNORUBICIN
     Indication: PLASMA CELL MYELOMA
     Route: 065
     Dates: start: 20080604, end: 20080611
  3. ARABINOSIDE [Concomitant]
     Indication: PLASMA CELL MYELOMA
     Route: 065
     Dates: start: 20080604, end: 20080611
  4. REVLIMID [Suspect]
     Active Substance: LENALIDOMIDE
     Indication: PLASMA CELL MYELOMA

REACTIONS (4)
  - Blood count abnormal [Fatal]
  - Thrombocytopenia [Fatal]
  - Performance status decreased [Fatal]
  - Plasmacytoma [Fatal]

NARRATIVE: CASE EVENT DATE: 20080813
